FAERS Safety Report 10032295 (Version 2)
Quarter: 2014Q2

REPORT INFORMATION
  Report Type: Spontaneous
  Country: US (occurrence: US)
  Receive Date: 20140324
  Receipt Date: 20140403
  Transmission Date: 20141212
  Serious: Yes (Hospitalization)
  Sender: FDA-Public Use
  Company Number: US-ACTELION-A-NJ2014-96207

PATIENT
  Age: 40 Year
  Sex: Female

DRUGS (15)
  1. VELETRI [Suspect]
     Indication: PULMONARY ARTERIAL HYPERTENSION
     Dosage: 20 NG/KG, PER MIN
     Route: 041
     Dates: start: 20121121
  2. VELETRI [Suspect]
     Dosage: 11 NG/KG, PER MIN
     Route: 042
  3. LETAIRIS [Concomitant]
  4. RIVAROXABAN [Concomitant]
  5. TRUVADA [Concomitant]
  6. FLONASE [Concomitant]
  7. LEXAPRO [Concomitant]
  8. ALBUTEROL [Concomitant]
  9. FUROSEMIDE [Concomitant]
  10. OXYGEN [Concomitant]
  11. POTASSIUM [Concomitant]
  12. PHENERGAN [Concomitant]
  13. ISENTRESS [Concomitant]
  14. REVATIO [Concomitant]
  15. ULTRAM [Concomitant]

REACTIONS (12)
  - Septic shock [Recovered/Resolved]
  - Neck injury [Recovering/Resolving]
  - Neck pain [Recovering/Resolving]
  - Local swelling [Recovering/Resolving]
  - Jugular vein thrombosis [Unknown]
  - Urinary tract infection [Recovered/Resolved]
  - Anaemia [Unknown]
  - Device dislocation [Recovering/Resolving]
  - Staphylococcal bacteraemia [Recovered/Resolved]
  - Catheter site infection [Recovered/Resolved]
  - Treatment noncompliance [Unknown]
  - Malaise [Unknown]
